FAERS Safety Report 22648759 (Version 1)
Quarter: 2023Q2

REPORT INFORMATION
  Report Type: Spontaneous
  Country: US (occurrence: None)
  Receive Date: 20230628
  Receipt Date: 20230628
  Transmission Date: 20230722
  Serious: No
  Sender: FDA-Public Use
  Company Number: US-ARIS GLOBAL-UWM202211-000038

PATIENT
  Age: 30 Year
  Sex: Male

DRUGS (2)
  1. LUCEMYRA [Suspect]
     Active Substance: LOFEXIDINE
     Indication: Drug withdrawal syndrome
     Dates: start: 202209, end: 2022
  2. SUBLOCADE [Concomitant]
     Active Substance: BUPRENORPHINE
     Indication: Drug withdrawal syndrome
     Dosage: NOT PROVIDED

REACTIONS (2)
  - Anxiety [Unknown]
  - Therapy cessation [Unknown]
